FAERS Safety Report 5695882-X (Version None)
Quarter: 2008Q2

REPORT INFORMATION
  Report Type: 
  Country: None (occurrence: None)
  Receive Date: 20080403
  Receipt Date: 20080403
  Transmission Date: 20081010
  Serious: Yes (Life-Threatening, Other)
  Sender: FDA-Public Use
  Company Number: None

PATIENT
  Age: 40 Year
  Sex: Female
  Weight: 88.4514 kg

DRUGS (1)
  1. CHANTIX [Suspect]
     Indication: SMOKING CESSATION THERAPY
     Dosage: 1 MG 2X DAY
     Dates: start: 20080201, end: 20080401

REACTIONS (4)
  - CONDITION AGGRAVATED [None]
  - DEPRESSION [None]
  - FEAR [None]
  - SUICIDAL IDEATION [None]
